FAERS Safety Report 8981010 (Version 1)
Quarter: 2012Q4

REPORT INFORMATION
  Report Type: 
  Country: JP (occurrence: JP)
  Receive Date: 20121221
  Receipt Date: 20121221
  Transmission Date: 20130627
  Serious: Yes (Congenital Anomaly)
  Sender: FDA-Public Use
  Company Number: JP-009507513-1212JPN008602

PATIENT
  Age: 88 Year
  Sex: Male

DRUGS (8)
  1. GASTER [Suspect]
     Dosage: UNK
     Route: 048
     Dates: start: 2011
  2. DANTRIUM [Suspect]
     Indication: SPASTIC PARALYSIS
     Dosage: UNK
     Route: 048
     Dates: start: 20120416, end: 20120604
  3. GRAMALIL [Suspect]
     Dosage: UNK
     Route: 048
     Dates: start: 2011
  4. ACETAMINOPHEN (+) TRAMADOL HYDROCHLORIDE [Suspect]
     Dosage: UNK
     Route: 048
     Dates: start: 2012
  5. SERENACE [Concomitant]
     Dosage: UNK
     Dates: start: 2011
  6. LIORESAL [Concomitant]
     Dosage: UNK
     Route: 048
     Dates: start: 2011
  7. LENDORMIN [Concomitant]
     Dosage: UNK
     Dates: start: 2011
  8. RACOL [Concomitant]
     Dosage: UNK
     Route: 048
     Dates: start: 2011

REACTIONS (1)
  - Calculus urinary [Recovering/Resolving]
